FAERS Safety Report 20626049 (Version 1)
Quarter: 2022Q1

REPORT INFORMATION
  Report Type: Spontaneous
  Country: US (occurrence: US)
  Receive Date: 20220323
  Receipt Date: 20220323
  Transmission Date: 20220423
  Serious: No
  Sender: FDA-Public Use
  Company Number: US-BoehringerIngelheim-2022-BI-160886

PATIENT
  Age: 67 Year
  Sex: Female

DRUGS (1)
  1. JARDIANCE [Suspect]
     Active Substance: EMPAGLIFLOZIN
     Indication: Diabetes mellitus

REACTIONS (7)
  - Perineal disorder [Unknown]
  - Urinary tract infection [Unknown]
  - Skin erosion [Unknown]
  - Dysuria [Unknown]
  - Urine analysis abnormal [Unknown]
  - Fungal infection [Unknown]
  - Genital haemorrhage [Unknown]
